FAERS Safety Report 19847362 (Version 2)
Quarter: 2021Q3

REPORT INFORMATION
  Report Type: Spontaneous
  Country: IE (occurrence: IE)
  Receive Date: 20210917
  Receipt Date: 20210921
  Transmission Date: 20211014
  Serious: Yes (Hospitalization, Other)
  Sender: FDA-Public Use
  Company Number: IE-PFIZER INC-202101164027

PATIENT
  Age: 38 Year
  Sex: Male

DRUGS (11)
  1. FLUCONAZOLE. [Suspect]
     Active Substance: FLUCONAZOLE
     Dosage: 800 MG, 1X/DAY (QD)
  2. TENOFOVIR ALAFENAMIDE [Concomitant]
     Active Substance: TENOFOVIR ALAFENAMIDE
     Indication: HIV INFECTION
     Dosage: UNK
  3. AMBISOME [Concomitant]
     Active Substance: AMPHOTERICIN B
     Indication: CRYPTOCOCCOSIS
     Dosage: 4 MG/KG
  4. ISAVUCONAZONIUM SULFATE [Suspect]
     Active Substance: ISAVUCONAZONIUM SULFATE
     Dosage: 200 MG, 1X/DAY (QD)
  5. AMBISOME [Concomitant]
     Active Substance: AMPHOTERICIN B
     Indication: MENINGITIS CRYPTOCOCCAL
     Dosage: 4 MG/KG, 1X/DAY
     Route: 042
  6. FLUCYTOSINE. [Concomitant]
     Active Substance: FLUCYTOSINE
     Indication: MENINGITIS CRYPTOCOCCAL
     Dosage: 25 MG/KG, 4X/DAY (QID)
     Route: 042
  7. FLUCONAZOLE. [Suspect]
     Active Substance: FLUCONAZOLE
     Indication: MENINGITIS CRYPTOCOCCAL
     Dosage: 1200 MG, 1X/DAY
  8. ISAVUCONAZONIUM SULFATE [Suspect]
     Active Substance: ISAVUCONAZONIUM SULFATE
     Indication: CRYPTOCOCCOSIS
     Dosage: 200 MG, 2X/DAY
  9. BICTEGRAVIR [Concomitant]
     Active Substance: BICTEGRAVIR
     Indication: HIV INFECTION
     Dosage: UNK
  10. DOLUTEGRAVIR + LAMIVUDINE + TENOFOVIR DISOPROXIL [Suspect]
     Active Substance: DOLUTEGRAVIR\LAMIVUDINE\TENOFOVIR DISOPROXIL FUMARATE
     Indication: HIV INFECTION
     Dosage: UNK
  11. EMTRICITABINE [Suspect]
     Active Substance: EMTRICITABINE
     Indication: HIV INFECTION
     Dosage: UNK

REACTIONS (6)
  - Social problem [Unknown]
  - Alopecia [Unknown]
  - Blood HIV RNA increased [Recovered/Resolved]
  - Toxicity to various agents [Unknown]
  - Viral mutation identified [Unknown]
  - Virologic failure [Recovered/Resolved]
